FAERS Safety Report 14119431 (Version 1)
Quarter: 2017Q4

REPORT INFORMATION
  Report Type: Spontaneous
  Country: US (occurrence: US)
  Receive Date: 20171024
  Receipt Date: 20171024
  Transmission Date: 20180321
  Serious: No
  Sender: FDA-Public Use
  Company Number: US-PFIZER INC-2017457060

PATIENT
  Age: 34 Year
  Sex: Female

DRUGS (1)
  1. EUCRISA [Suspect]
     Active Substance: CRISABOROLE
     Dosage: 1 DF, 2X/DAY
     Route: 061
     Dates: start: 20171020

REACTIONS (1)
  - Pain [Unknown]

NARRATIVE: CASE EVENT DATE: 201710
